FAERS Safety Report 6520352-6 (Version None)
Quarter: 2009Q4

REPORT INFORMATION
  Report Type: 
  Country: None (occurrence: None)
  Receive Date: 20091229
  Receipt Date: 20091214
  Transmission Date: 20100525
  Serious: Yes (Other)
  Sender: FDA-Public Use
  Company Number: ES-PFIZER INC-2009309565

PATIENT
  Age: 51 Year
  Sex: Female

DRUGS (6)
  1. GENOTONORM [Suspect]
     Indication: GROWTH HORMONE DEFICIENCY
     Dosage: 0.2 MG, FOR 5 DAYS OF WEEK
     Route: 058
     Dates: start: 20081001, end: 20090416
  2. IRON [Concomitant]
     Dosage: UNK
     Route: 048
  3. MAGNESIUM [Concomitant]
     Dosage: UNK, AS NEEDED
     Route: 048
  4. HIDROALTESONA [Concomitant]
     Indication: HYPOPITUITARISM
     Dosage: UNK
     Route: 048
  5. HIDROFEROL [Concomitant]
     Dosage: 20 ML, UNK
     Route: 048
  6. LEVOTHROID [Concomitant]
     Dosage: 50 UG, UNK
     Route: 048

REACTIONS (1)
  - CHRONIC MYELOID LEUKAEMIA [None]
